FAERS Safety Report 25405919 (Version 1)
Quarter: 2025Q2

REPORT INFORMATION
  Report Type: Spontaneous
  Country: FR (occurrence: FR)
  Receive Date: 20250606
  Receipt Date: 20250606
  Transmission Date: 20250717
  Serious: Yes (Life-Threatening, Other)
  Sender: AUROBINDO
  Company Number: FR-AFSSAPS-AN2025000639

PATIENT
  Age: 55 Year
  Sex: Male
  Weight: 86 kg

DRUGS (10)
  1. OLANZAPINE [Suspect]
     Active Substance: OLANZAPINE
     Indication: Mental disorder
     Dosage: 30 MILLIGRAM, ONCE A DAY
     Route: 048
     Dates: end: 20250413
  2. RISPERIDONE [Suspect]
     Active Substance: RISPERIDONE
     Indication: Mental disorder
     Dosage: 12 MILLIGRAM, ONCE A DAY
     Route: 048
     Dates: end: 20250413
  3. DEPAKOTE [Suspect]
     Active Substance: DIVALPROEX SODIUM
     Indication: Mental disorder
     Dosage: 2 GRAM, ONCE A DAY
     Route: 048
     Dates: end: 20250413
  4. HALOPERIDOL [Suspect]
     Active Substance: HALOPERIDOL
     Indication: Mental disorder
     Dosage: 5 MILLIGRAM, ONCE A DAY
     Route: 048
     Dates: end: 20250413
  5. LOXAPINE [Suspect]
     Active Substance: LOXAPINE
     Indication: Mental disorder
     Dosage: 150 MILLIGRAM, ONCE A DAY
     Route: 048
     Dates: end: 20250413
  6. TROPATEPINE HYDROCHLORIDE [Suspect]
     Active Substance: TROPATEPINE HYDROCHLORIDE
     Indication: Parkinsonism
     Dosage: 30 MILLIGRAM, ONCE A DAY
     Route: 048
  7. NICARDIPINE HYDROCHLORIDE [Concomitant]
     Active Substance: NICARDIPINE HYDROCHLORIDE
     Indication: Product used for unknown indication
     Dosage: 2 DOSAGE FORM, ONCE A DAY
     Route: 048
     Dates: end: 20250413
  8. POLYETHYLENE GLYCOLS [Concomitant]
     Active Substance: POLYETHYLENE GLYCOLS
     Indication: Product used for unknown indication
     Dosage: 60 GRAM, ONCE A DAY
     Route: 048
  9. HERBALS\SAW PALMETTO [Concomitant]
     Active Substance: HERBALS\SAW PALMETTO
     Indication: Product used for unknown indication
     Dosage: 2 DOSAGE FORM, ONCE A DAY
     Route: 048
  10. TAMSULOSIN HYDROCHLORIDE [Concomitant]
     Active Substance: TAMSULOSIN HYDROCHLORIDE
     Indication: Product used for unknown indication
     Dosage: 0.4 MILLIGRAM, ONCE A DAY
     Route: 048

REACTIONS (2)
  - Pneumonia aspiration [Recovered/Resolved]
  - Choking [Recovered/Resolved]

NARRATIVE: CASE EVENT DATE: 20250410
